FAERS Safety Report 6505166-5 (Version None)
Quarter: 2009Q4

REPORT INFORMATION
  Report Type: 
  Country: None (occurrence: None)
  Receive Date: 20091218
  Receipt Date: 20091210
  Transmission Date: 20100525
  Serious: Yes (Other)
  Sender: FDA-Public Use
  Company Number: PHHY2009JP54982

PATIENT
  Age: 61 Year
  Sex: Male

DRUGS (1)
  1. VOLTAREN [Suspect]
     Dosage: 50 MG, ONCE/SINGLE
     Route: 054

REACTIONS (4)
  - ALTERED STATE OF CONSCIOUSNESS [None]
  - DEMENTIA [None]
  - LISTLESS [None]
  - MEMORY IMPAIRMENT [None]
